FAERS Safety Report 4275422-2 (Version None)
Quarter: 2004Q1

REPORT INFORMATION
  Report Type: 
  Country: None (occurrence: None)
  Receive Date: 20040116
  Receipt Date: 20040107
  Transmission Date: 20041129
  Serious: Yes (Death, Hospitalization, Other)
  Sender: FDA-Public Use
  Company Number: 2003-11-0898

PATIENT
  Age: 30 Year
  Sex: Male
  Weight: 111.5849 kg

DRUGS (9)
  1. TEMODAR [Suspect]
     Indication: METASTATIC MALIGNANT MELANOMA
     Dosage: SEE IMAGE
     Route: 048
     Dates: start: 20030401, end: 20030604
  2. TEMODAR [Suspect]
     Indication: METASTATIC MALIGNANT MELANOMA
     Dosage: SEE IMAGE
     Route: 048
     Dates: start: 20030531, end: 20030604
  3. NAPROSYN [Concomitant]
  4. OXYCONTIN [Concomitant]
  5. MORPHINE [Concomitant]
  6. AMBIEN [Concomitant]
  7. LASIX [Concomitant]
  8. PEPCID [Concomitant]
  9. COMPAZINE [Concomitant]

REACTIONS (14)
  - ANAEMIA [None]
  - BLOOD CULTURE POSITIVE [None]
  - BLOOD PRESSURE DIASTOLIC DECREASED [None]
  - CHILLS [None]
  - ENCEPHALOPATHY [None]
  - HEPATIC FAILURE [None]
  - HEPATIC PAIN [None]
  - HEPATOMEGALY [None]
  - INSOMNIA [None]
  - LETHARGY [None]
  - OEDEMA PERIPHERAL [None]
  - PYREXIA [None]
  - SYSTEMIC CANDIDA [None]
  - WEIGHT DECREASED [None]
